FAERS Safety Report 8138419-8 (Version None)
Quarter: 2012Q1

REPORT INFORMATION
  Report Type: 
  Country: None (occurrence: None)
  Receive Date: 20120215
  Receipt Date: 20120131
  Transmission Date: 20120608
  Serious: Yes (Other)
  Sender: FDA-Public Use
  Company Number: US-ROCHE-1033961

PATIENT
  Sex: Male
  Weight: 87.622 kg

DRUGS (3)
  1. OXYCODONE HCL [Concomitant]
     Indication: PAIN
     Route: 048
     Dates: start: 20111114
  2. ZELBORAF [Suspect]
     Indication: MALIGNANT MELANOMA
     Route: 048
     Dates: start: 20120106
  3. DEXAMETHASONE [Concomitant]
     Dosage: TAPER TOWARDS END OF 01-FEB-2012
     Route: 048
     Dates: start: 20111206

REACTIONS (1)
  - NASAL SEPTUM PERFORATION [None]
